FAERS Safety Report 12539039 (Version 1)
Quarter: 2016Q3

REPORT INFORMATION
  Report Type: Spontaneous
  Country: FR (occurrence: FR)
  Receive Date: 20160708
  Receipt Date: 20160708
  Transmission Date: 20161109
  Serious: Yes (Hospitalization)
  Sender: FDA-Public Use
  Company Number: FR-ACCORD-042099

PATIENT
  Age: 74 Year
  Sex: Male

DRUGS (2)
  1. AMETYCINE [Suspect]
     Active Substance: MITOMYCIN
     Indication: ADENOCARCINOMA GASTRIC
     Dosage: ONE SINGLE INTAKE
     Route: 042
     Dates: start: 20160208
  2. CISPLATIN ACCORD [Suspect]
     Active Substance: CISPLATIN
     Indication: ADENOCARCINOMA GASTRIC
     Dosage: ONE SINGLE INTAKE
     Route: 042
     Dates: start: 20160208

REACTIONS (1)
  - Pancytopenia [Recovered/Resolved]

NARRATIVE: CASE EVENT DATE: 20160213
